FAERS Safety Report 6785334-8 (Version None)
Quarter: 2010Q2

REPORT INFORMATION
  Report Type: 
  Country: None (occurrence: None)
  Receive Date: 20100623
  Receipt Date: 20100615
  Transmission Date: 20101027
  Serious: Yes (Hospitalization)
  Sender: FDA-Public Use
  Company Number: US-BIOGENIDEC-2010BI020537

PATIENT
  Age: 45 Year
  Sex: Female

DRUGS (2)
  1. AVONEX [Suspect]
     Indication: MULTIPLE SCLEROSIS
     Route: 030
     Dates: start: 19951101, end: 20071231
  2. AVONEX [Suspect]
     Route: 030
     Dates: start: 20100317

REACTIONS (5)
  - BENIGN NEOPLASM OF THYROID GLAND [None]
  - FATIGUE [None]
  - NEPHROLITHIASIS [None]
  - PNEUMONIA [None]
  - SPEECH DISORDER [None]
